FAERS Safety Report 7639718-6 (Version None)
Quarter: 2011Q3

REPORT INFORMATION
  Report Type: 
  Country: None (occurrence: None)
  Receive Date: 20110727
  Receipt Date: 20110721
  Transmission Date: 20111222
  Serious: Yes (Hospitalization, Other)
  Sender: FDA-Public Use
  Company Number: US-PFIZER INC-2011085213

PATIENT
  Sex: Female

DRUGS (3)
  1. CHANTIX [Suspect]
     Indication: SMOKING CESSATION THERAPY
     Dosage: UNK
     Dates: start: 20070201, end: 20070601
  2. VIBRAMYCIN [Concomitant]
     Indication: PNEUMONIA
     Dosage: UNK
     Dates: start: 20070201, end: 20080201
  3. CHANTIX [Suspect]
     Dosage: UNK
     Dates: start: 20080801, end: 20080901

REACTIONS (7)
  - INTENTIONAL OVERDOSE [None]
  - SUICIDE ATTEMPT [None]
  - AMNESIA [None]
  - DEPRESSION [None]
  - ANGER [None]
  - AGGRESSION [None]
  - INSOMNIA [None]
